FAERS Safety Report 6846895-3 (Version None)
Quarter: 2010Q3

REPORT INFORMATION
  Report Type: 
  Country: None (occurrence: None)
  Receive Date: 20100715
  Receipt Date: 20100608
  Transmission Date: 20110219
  Serious: No
  Sender: FDA-Public Use
  Company Number: US-PFIZER INC-2007080231

PATIENT
  Sex: Female

DRUGS (3)
  1. CHANTIX [Suspect]
     Indication: SMOKING CESSATION THERAPY
     Dosage: UNK
     Route: 048
     Dates: start: 20100101
  2. SPIRIVA [Concomitant]
  3. ADVAIR DISKUS 100/50 [Concomitant]

REACTIONS (5)
  - CONSTIPATION [None]
  - DRY MOUTH [None]
  - MALAISE [None]
  - STRESS [None]
  - WEIGHT INCREASED [None]
